FAERS Safety Report 21357736 (Version 1)
Quarter: 2022Q3

REPORT INFORMATION
  Report Type: Spontaneous
  Country: FR (occurrence: FR)
  Receive Date: 20220921
  Receipt Date: 20220921
  Transmission Date: 20221027
  Serious: Yes (Hospitalization)
  Sender: FDA-Public Use
  Company Number: None

PATIENT
  Age: 47 Year
  Sex: Female
  Weight: 84 kg

DRUGS (9)
  1. PANTOPRAZOLE [Interacting]
     Active Substance: PANTOPRAZOLE
     Indication: Product used for unknown indication
     Dosage: DURATION: YEARS, UNIT DOSE :  20 MG, FREQUENCY TIME : 1 DAY , THERAPY START DATE  : NASK
     Route: 065
     Dates: end: 20220818
  2. CANDESARTAN CILEXETIL [Interacting]
     Active Substance: CANDESARTAN CILEXETIL
     Indication: Hypertension
     Dosage: DURATION: YEARS, UNIT DOSE :  12 MG, FREQUENCY TIME : 1 DAY , THERAPY START DATE  : NASK
     Route: 065
     Dates: end: 20220818
  3. PRAVASTATIN SODIUM [Interacting]
     Active Substance: PRAVASTATIN SODIUM
     Indication: Hypertriglyceridaemia
     Dosage: UNIT DOSE : 1 DOSAGE FORM ,  FREQUENCY TIME : 1 DAY ,   DURATION : 391 DAYS
     Route: 065
     Dates: start: 20210723, end: 20220818
  4. PAXLOVID [Interacting]
     Active Substance: NIRMATRELVIR\RITONAVIR
     Indication: COVID-19
     Dosage: (100+150MG) X 2 / DAY, UNIT DOSE : 4 DOSAGE FORMS ,  FREQUENCY TIME : 1 DAY ,   DURATION : 2 DAYS
     Route: 065
     Dates: start: 20220816, end: 20220818
  5. MYFORTIC [Interacting]
     Active Substance: MYCOPHENOLATE SODIUM
     Indication: Renal transplant
     Dosage: STRENGTH : 360 MG, GASTRO-RESISTANT FILM-COATED TABLET, UNIT DOSE : 2 DOSAGE FORM ,  FREQUENCY TIME
     Route: 065
     Dates: end: 20220818
  6. TACROLIMUS [Interacting]
     Active Substance: TACROLIMUS
     Indication: Renal transplant
     Dosage: UNIT DOSE :   9 MG, DURATION :656 DAYS, FREQUENCY TIME : 1 DAY
     Route: 065
     Dates: start: 20201030, end: 20220817
  7. HYDROCHLOROTHIAZIDE [Interacting]
     Active Substance: HYDROCHLOROTHIAZIDE
     Indication: Hypertension
     Dosage: DURATION: YEARS , UNIT DOSE : 12. 5 MG , FREQUENCY TIME : 1 DAY  , THERAPY START DATE  : NASK
     Route: 065
     Dates: end: 20220818
  8. NEBIVOLOL [Concomitant]
     Active Substance: NEBIVOLOL
     Indication: Product used for unknown indication
  9. PREDNISONE [Concomitant]
     Active Substance: PREDNISONE
     Indication: Product used for unknown indication

REACTIONS (3)
  - Acute kidney injury [Recovered/Resolved]
  - Potentiating drug interaction [Recovered/Resolved]
  - Rhabdomyolysis [Recovered/Resolved]

NARRATIVE: CASE EVENT DATE: 20220818
